FAERS Safety Report 6931805-0 (Version None)
Quarter: 2010Q3

REPORT INFORMATION
  Report Type: 
  Country: None (occurrence: None)
  Receive Date: 20100819
  Receipt Date: 20100810
  Transmission Date: 20110219
  Serious: No
  Sender: FDA-Public Use
  Company Number: US-BIOGENIDEC-2010BI027420

PATIENT
  Age: 36 Year
  Sex: Female

DRUGS (2)
  1. AVONEX [Suspect]
     Indication: MULTIPLE SCLEROSIS
     Route: 030
     Dates: start: 20100710
  2. GABAPENTIN [Concomitant]
     Indication: TREMOR
     Route: 048
     Dates: start: 20090601

REACTIONS (5)
  - ASTHENIA [None]
  - BONE PAIN [None]
  - INFLUENZA LIKE ILLNESS [None]
  - PHOBIA [None]
  - TREMOR [None]
